FAERS Safety Report 21144522 (Version 1)
Quarter: 2022Q3

REPORT INFORMATION
  Report Type: Spontaneous
  Country: US (occurrence: US)
  Receive Date: 20220728
  Receipt Date: 20220728
  Transmission Date: 20221026
  Serious: No
  Sender: FDA-Public Use
  Company Number: US-MYLANLABS-2022M1079380

PATIENT
  Sex: Female
  Weight: 75.3 kg

DRUGS (1)
  1. SEMGLEE (INSULIN GLARGINE-YFGN) [Suspect]
     Active Substance: INSULIN GLARGINE-YFGN
     Indication: Product used for unknown indication
     Dosage: UNK, 30 UNITS/DAY
     Route: 065

REACTIONS (6)
  - Malaise [Unknown]
  - Product dose omission issue [Unknown]
  - Fatigue [Unknown]
  - Device issue [Unknown]
  - Weight increased [Unknown]
  - Stress [Unknown]
